FAERS Safety Report 4924554-1 (Version None)
Quarter: 2006Q1

REPORT INFORMATION
  Report Type: 
  Country: None (occurrence: None)
  Receive Date: 20060227
  Receipt Date: 20060208
  Transmission Date: 20060701
  Serious: Yes (Hospitalization)
  Sender: FDA-Public Use
  Company Number: JP-BOEHRINGER INGELHEIM PHARMACEUTICALS, INC.-2006-BP-01652YA

PATIENT
  Sex: Male
  Weight: 70 kg

DRUGS (5)
  1. HARNAL [Suspect]
     Indication: BENIGN PROSTATIC HYPERPLASIA
     Route: 048
     Dates: start: 20060127, end: 20060206
  2. KETOPROFEN [Concomitant]
     Dates: start: 20060126, end: 20060127
  3. BLOPRESS [Concomitant]
     Route: 048
     Dates: start: 20051227, end: 20060207
  4. PROTECADIN [Concomitant]
     Route: 048
     Dates: start: 20051227, end: 20060207
  5. LEXIN [Concomitant]
     Dates: start: 20051227, end: 20060207

REACTIONS (5)
  - DRUG ERUPTION [None]
  - FACE OEDEMA [None]
  - GLOSSODYNIA [None]
  - HYPERTHERMIA [None]
  - UPPER RESPIRATORY TRACT INFLAMMATION [None]
